FAERS Safety Report 5093570-4 (Version None)
Quarter: 2006Q3

REPORT INFORMATION
  Report Type: 
  Country: None (occurrence: None)
  Receive Date: 20060829
  Receipt Date: 20060809
  Transmission Date: 20061208
  Serious: Yes (Hospitalization, Other)
  Sender: FDA-Public Use
  Company Number: US200512000802

PATIENT
  Age: 51 Year
  Sex: Female
  Weight: 90.7 kg

DRUGS (4)
  1. ZYPREXA [Suspect]
     Indication: ANXIETY
     Dosage: 5 MG, ORAL; 2.5 MG
     Route: 048
     Dates: start: 19971201
  2. REMERON [Concomitant]
  3. CELEXA [Concomitant]
  4. EFFEXOR [Concomitant]

REACTIONS (5)
  - BLOOD CHOLESTEROL ABNORMAL [None]
  - DIABETES MELLITUS NON-INSULIN-DEPENDENT [None]
  - GALLBLADDER OPERATION [None]
  - HYPERTENSION [None]
  - OBESITY [None]
